FAERS Safety Report 8300602-6 (Version None)
Quarter: 2012Q2

REPORT INFORMATION
  Report Type: 
  Country: None (occurrence: None)
  Receive Date: 20120420
  Receipt Date: 20120410
  Transmission Date: 20120825
  Serious: Yes (Hospitalization)
  Sender: FDA-Public Use
  Company Number: PHHY2012KR017464

PATIENT
  Sex: Male
  Weight: 39 kg

DRUGS (4)
  1. TACROBELL [Concomitant]
  2. ZOVIRAX [Concomitant]
  3. EXJADE [Suspect]
     Indication: IRON OVERLOAD
     Dosage: UNK UKN, UNK
     Route: 048
     Dates: start: 20110620
  4. EXJADE [Suspect]
     Indication: ACUTE LYMPHOCYTIC LEUKAEMIA

REACTIONS (2)
  - RENAL IMPAIRMENT [None]
  - NASOPHARYNGITIS [None]
